FAERS Safety Report 9698953 (Version 1)
Quarter: 2013Q4

REPORT INFORMATION
  Report Type: Spontaneous
  Country: US (occurrence: None)
  Receive Date: 20131118
  Receipt Date: 20131118
  Transmission Date: 20140711
  Serious: Yes (Hospitalization)
  Sender: FDA-Public Use
  Company Number: BU2013-003

PATIENT
  Age: 26 Year
  Sex: Female
  Weight: 63.1 kg

DRUGS (5)
  1. BUPHENYL [Suspect]
     Indication: BLOOD UREA ABNORMAL
     Route: 048
     Dates: start: 20130814, end: 20130817
  2. LORAZEPAM [Concomitant]
  3. CITRULLINE [Concomitant]
  4. MULTIPLE VITAMINS-MINERALS [Concomitant]
  5. CALCIUM [Concomitant]

REACTIONS (21)
  - Insomnia [None]
  - Anxiety [None]
  - Panic attack [None]
  - Confusional state [None]
  - Gait disturbance [None]
  - Vomiting [None]
  - Tachycardia [None]
  - Blood pressure increased [None]
  - Hyperammonaemia [None]
  - Dry mouth [None]
  - Respiratory tract congestion [None]
  - Upper-airway cough syndrome [None]
  - Cough [None]
  - Decreased appetite [None]
  - Chest discomfort [None]
  - Headache [None]
  - Feeling abnormal [None]
  - Paraesthesia [None]
  - Restlessness [None]
  - Tachypnoea [None]
  - Condition aggravated [None]
